FAERS Safety Report 4345654-3 (Version None)
Quarter: 2004Q2

REPORT INFORMATION
  Report Type: 
  Country: None (occurrence: None)
  Receive Date: 20040421
  Receipt Date: 20040407
  Transmission Date: 20050107
  Serious: Yes (Other)
  Sender: FDA-Public Use
  Company Number: USA-2002-0003286

PATIENT
  Age: 40 Year
  Sex: Male
  Weight: 83.9 kg

DRUGS (33)
  1. OXYCONTIN [Suspect]
     Indication: PAIN
     Dosage: 20 MG, DAILY, ORAL   SEE IMAGE
     Route: 048
  2. VICOPROFEN [Suspect]
     Indication: PAIN
     Dosage: ORAL
     Route: 048
  3. OXYCODONE HCL [Concomitant]
  4. MS CONTIN [Concomitant]
  5. PREVACID [Concomitant]
  6. BELLERGAL (BELLADONNA ALKALOIDS, ERGOTAMINE TARTRATE, PHENOBARBITAL) [Concomitant]
  7. AMBIEN [Concomitant]
  8. PHENERGAN [Concomitant]
  9. SERZONE [Concomitant]
  10. SONATA [Concomitant]
  11. TRAZODONE HCL [Concomitant]
  12. VIOXX [Concomitant]
  13. VICOPROFEN [Concomitant]
  14. CORTISONE [Concomitant]
  15. DOXYCYCLINE [Concomitant]
  16. PERCOCET [Concomitant]
  17. LORCET-HD [Concomitant]
  18. TORADOL [Concomitant]
  19. DEXAMETHASONE [Concomitant]
  20. KENALOG [Concomitant]
  21. VIVACTIL [Concomitant]
  22. VERAPAMIL [Concomitant]
  23. SINEQUAN [Concomitant]
  24. NORFLEX [Concomitant]
  25. ASPIRIN [Concomitant]
  26. SANGUINARINE [Concomitant]
  27. CLARITIN [Concomitant]
  28. XANAX [Concomitant]
  29. CELEXA [Concomitant]
  30. PROZAC [Concomitant]
  31. ALLEGRA [Concomitant]
  32. NUBAIN [Concomitant]
  33. SOMA [Concomitant]

REACTIONS (35)
  - ANOREXIA [None]
  - APATHY [None]
  - ARTHRALGIA [None]
  - ARTHROPOD BITE [None]
  - BLOOD PRESSURE INCREASED [None]
  - CHEST DISCOMFORT [None]
  - CHEST PAIN [None]
  - CONSTIPATION [None]
  - CONTUSION [None]
  - DEPRESSION [None]
  - DRUG DEPENDENCE [None]
  - DRUG INEFFECTIVE [None]
  - DRUG WITHDRAWAL SYNDROME [None]
  - DYSPEPSIA [None]
  - FALL [None]
  - GASTROENTERITIS VIRAL [None]
  - GENERALISED ANXIETY DISORDER [None]
  - INTERVERTEBRAL DISC PROTRUSION [None]
  - MEDICATION ERROR [None]
  - MIGRAINE [None]
  - MUSCLE SPASMS [None]
  - MUSCLE TIGHTNESS [None]
  - MYOFASCIAL PAIN SYNDROME [None]
  - NECK PAIN [None]
  - PAIN EXACERBATED [None]
  - PHONOPHOBIA [None]
  - PHOTOPHOBIA [None]
  - RASH [None]
  - SINUSITIS [None]
  - SLEEP DISORDER [None]
  - SUICIDAL IDEATION [None]
  - TENSION HEADACHE [None]
  - THROAT TIGHTNESS [None]
  - TOOTH ABSCESS [None]
  - URINARY HESITATION [None]
